FAERS Safety Report 26134592 (Version 1)
Quarter: 2025Q4

REPORT INFORMATION
  Report Type: Spontaneous
  Country: GB (occurrence: GB)
  Receive Date: 20251209
  Receipt Date: 20251209
  Transmission Date: 20260118
  Serious: Yes (Hospitalization, Other)
  Sender: GALPHARM INTERNATIONAL
  Company Number: None

PATIENT
  Age: 88 Year
  Sex: Female

DRUGS (1)
  1. ACETAMINOPHEN [Suspect]
     Active Substance: ACETAMINOPHEN
     Indication: Adverse drug reaction
     Dosage: SEE NOTES
     Route: 065
     Dates: start: 20250917

REACTIONS (2)
  - Medication error [Unknown]
  - Somnolence [Unknown]

NARRATIVE: CASE EVENT DATE: 20250917
